FAERS Safety Report 4891213-3 (Version None)
Quarter: 2006Q1

REPORT INFORMATION
  Report Type: 
  Country: None (occurrence: None)
  Receive Date: 20060120
  Receipt Date: 20060110
  Transmission Date: 20060701
  Serious: Yes (Death)
  Sender: FDA-Public Use
  Company Number: 200510057BYL

PATIENT
  Age: 68 Year
  Sex: Male
  Weight: 67 kg

DRUGS (9)
  1. ADALAT [Suspect]
     Indication: HYPERTENSION
     Dosage: 60 MG, TOTAL DAILY; ORAL
     Route: 048
     Dates: start: 20050117, end: 20050130
  2. DIOVAN [Suspect]
     Indication: HYPERTENSION
     Dosage: 160 MG, TOTAL DAILY; ORAL
     Route: 048
     Dates: start: 20050119, end: 20050124
  3. DOXAZOSIN MESYLATE [Suspect]
     Indication: HYPERTENSION
     Dosage: 8 MG, TOTAL DAILY; ORAL
     Route: 048
     Dates: start: 20050121, end: 20050126
  4. MINIPRESS [Suspect]
     Indication: HYPERTENSION
     Dosage: 8 MG, TOTAL DAILY; ORAL
     Route: 048
     Dates: start: 20050120, end: 20050126
  5. METOPROLOL TARTRATE [Suspect]
     Indication: HYPERTENSION
     Dosage: 60 MG, TOTAL DAILY; ORAL
     Route: 048
     Dates: start: 20050124, end: 20050126
  6. AMLODIN [Concomitant]
  7. CONIEL [Concomitant]
  8. MIKARDIS [Concomitant]
  9. NU-LOTAN [Concomitant]

REACTIONS (4)
  - DISSEMINATED INTRAVASCULAR COAGULATION [None]
  - HEPATIC NECROSIS [None]
  - HEPATITIS [None]
  - HERPES VIRUS INFECTION [None]
